FAERS Safety Report 13737940 (Version 3)
Quarter: 2017Q3

REPORT INFORMATION
  Report Type: Spontaneous
  Country: US (occurrence: US)
  Receive Date: 20170710
  Receipt Date: 20170925
  Transmission Date: 20171127
  Serious: Yes (Hospitalization)
  Sender: FDA-Public Use
  Company Number: US-PFIZER INC-2017292533

PATIENT
  Age: 58 Year
  Sex: Female
  Weight: 97.52 kg

DRUGS (5)
  1. PREMARIN [Suspect]
     Active Substance: ESTROGENS, CONJUGATED
     Indication: PAPILLOMA VIRAL INFECTION
     Dosage: 1/3 GRAM, 1X/DAY
     Route: 067
     Dates: start: 201705, end: 20170616
  2. PREMARIN [Suspect]
     Active Substance: ESTROGENS, CONJUGATED
     Indication: SURGERY
  3. HYDROCHLOROTHIAZIDE. [Concomitant]
     Active Substance: HYDROCHLOROTHIAZIDE
     Indication: HYPERTENSION
     Dosage: 25 MG, 1X/DAY
     Route: 048
     Dates: start: 201702
  4. AMLODIPINE [Concomitant]
     Active Substance: AMLODIPINE BESYLATE
     Indication: HYPERTENSION
     Dosage: 10 MG, 1X/DAY
     Route: 048
     Dates: start: 201702
  5. METFORMIN [Concomitant]
     Active Substance: METFORMIN HYDROCHLORIDE
     Indication: DIABETES MELLITUS
     Dosage: 500 MG, 1X/DAY
     Route: 048
     Dates: start: 201704

REACTIONS (5)
  - Back pain [Not Recovered/Not Resolved]
  - Product use in unapproved indication [Unknown]
  - Pain in extremity [Not Recovered/Not Resolved]
  - Product use issue [Unknown]
  - Product use in unapproved indication [Unknown]

NARRATIVE: CASE EVENT DATE: 201705
